FAERS Safety Report 5573147-4 (Version None)
Quarter: 2007Q4

REPORT INFORMATION
  Report Type: 
  Country: None (occurrence: None)
  Receive Date: 20071220
  Receipt Date: 20071211
  Transmission Date: 20080405
  Serious: Yes (Hospitalization)
  Sender: FDA-Public Use
  Company Number: 2007BI017672

PATIENT
  Age: 20 Year
  Sex: Female

DRUGS (2)
  1. NATALIZUMAB (NATALIZUMAB) [Suspect]
     Indication: MULTIPLE SCLEROSIS
     Dosage: 300 MG;QM;IV
     Route: 042
     Dates: start: 20061219
  2. NATALIZUMAB (NATALIZUMAB) [Suspect]

REACTIONS (7)
  - FATIGUE [None]
  - GLIOSIS [None]
  - HAEMATOMA [None]
  - HEADACHE [None]
  - NAUSEA [None]
  - ORAL HERPES [None]
  - QUADRIPARESIS [None]
